FAERS Safety Report 9123189 (Version 1)
Quarter: 2013Q1

REPORT INFORMATION
  Report Type: Spontaneous
  Country: US (occurrence: US)
  Receive Date: 20130227
  Receipt Date: 20130227
  Transmission Date: 20140127
  Serious: Yes (Other)
  Sender: FDA-Public Use
  Company Number: US-PFIZER INC-2013066605

PATIENT
  Age: 28 Year
  Sex: Male
  Weight: 70.3 kg

DRUGS (1)
  1. BENEFIX [Suspect]
     Indication: FACTOR IX DEFICIENCY
     Dosage: 100 IU/KG, AS NEEDED (ON-DEMAND USE PER INFUSION)

REACTIONS (1)
  - Haemorrhage [Unknown]
